FAERS Safety Report 4625436-5 (Version None)
Quarter: 2005Q2

REPORT INFORMATION
  Report Type: 
  Country: None (occurrence: None)
  Receive Date: 20050325
  Receipt Date: 20050208
  Transmission Date: 20051028
  Serious: Yes (Hospitalization, Other)
  Sender: FDA-Public Use
  Company Number: USA050290231

PATIENT
  Age: 58 Year
  Sex: Female
  Weight: 67 kg

DRUGS (3)
  1. HUMALOG [Suspect]
     Indication: DIABETES MELLITUS
     Dates: start: 19980101
  2. FORTEO [Suspect]
     Indication: FRACTURE
     Dosage: 20 UG
     Dates: start: 20041201
  3. CALCIUM GLUCONATE [Concomitant]

REACTIONS (18)
  - BODY HEIGHT DECREASED [None]
  - CARDIAC DISORDER [None]
  - DIALYSIS [None]
  - DIZZINESS [None]
  - DYSSTASIA [None]
  - EYE DISORDER [None]
  - FALL [None]
  - FOOT FRACTURE [None]
  - FRACTURE [None]
  - FRACTURE NONUNION [None]
  - INFLUENZA [None]
  - INTERVERTEBRAL DISC COMPRESSION [None]
  - OSTEOPENIA [None]
  - RENAL TRANSPLANT [None]
  - RIB FRACTURE [None]
  - STENT PLACEMENT [None]
  - STOMACH DISCOMFORT [None]
  - UPPER LIMB FRACTURE [None]
